FAERS Safety Report 9636585 (Version 1)
Quarter: 2013Q4

REPORT INFORMATION
  Report Type: Spontaneous
  Country: CN (occurrence: CN)
  Receive Date: 20131021
  Receipt Date: 20131021
  Transmission Date: 20140711
  Serious: Yes (Other)
  Sender: FDA-Public Use
  Company Number: CN-ASTRAZENECA-2013SE26711

PATIENT
  Age: 72 Year
  Sex: Male

DRUGS (2)
  1. PLENDIL [Suspect]
     Indication: HYPERTENSION
     Route: 048
     Dates: start: 2006
  2. BETALOC [Suspect]
     Indication: ANGINA UNSTABLE
     Route: 048
     Dates: start: 201304

REACTIONS (2)
  - Angina unstable [Unknown]
  - Intentional drug misuse [Unknown]
